FAERS Safety Report 17522806 (Version 1)
Quarter: 2020Q1

REPORT INFORMATION
  Report Type: Spontaneous
  Country: CN (occurrence: CN)
  Receive Date: 20200311
  Receipt Date: 20200311
  Transmission Date: 20200409
  Serious: Yes (Hospitalization)
  Sender: FDA-Public Use
  Company Number: CN-BAXTER-2020BAX005433

PATIENT
  Age: 63 Year
  Sex: Male

DRUGS (4)
  1. ENDOXAN [Suspect]
     Active Substance: CYCLOPHOSPHAMIDE
     Indication: MALIGNANT NEOPLASM OF SPINAL CORD
     Dosage: ENDOXAN + 0.9% NS 500 ML
     Route: 041
     Dates: start: 20200212, end: 20200212
  2. 0.9% SODIUM CHLORIDE INJECTION [Suspect]
     Active Substance: SODIUM CHLORIDE
     Dosage: EPIRUBICIN + 0.9% NS 40 ML
     Route: 040
     Dates: start: 20200212, end: 20200212
  3. 0.9% SODIUM CHLORIDE INJECTION [Suspect]
     Active Substance: SODIUM CHLORIDE
     Indication: MEDICATION DILUTION
     Dosage: ENDOXAN + 0.9% NS 500 ML
     Route: 041
     Dates: start: 20200212, end: 20200212
  4. EPIRUBICIN [Suspect]
     Active Substance: EPIRUBICIN
     Indication: MALIGNANT NEOPLASM OF SPINAL CORD
     Dosage: EPIRUBICIN + 0.9% NS 40 ML
     Route: 040
     Dates: start: 20200212, end: 20200212

REACTIONS (1)
  - Diarrhoea [Recovered/Resolved]

NARRATIVE: CASE EVENT DATE: 20200213
